FAERS Safety Report 8258168-5 (Version None)
Quarter: 2012Q2

REPORT INFORMATION
  Report Type: 
  Country: None (occurrence: None)
  Receive Date: 20120404
  Receipt Date: 20120328
  Transmission Date: 20120825
  Serious: Yes (Hospitalization)
  Sender: FDA-Public Use
  Company Number: PHHY2012DE027572

PATIENT
  Sex: Female

DRUGS (1)
  1. VOLTAREN [Suspect]
     Dosage: AS NEEDED
     Route: 054

REACTIONS (1)
  - INFECTIOUS PERITONITIS [None]
